FAERS Safety Report 18694053 (Version 1)
Quarter: 2021Q1

REPORT INFORMATION
  Report Type: Spontaneous
  Country: CA (occurrence: CA)
  Receive Date: 20210104
  Receipt Date: 20210104
  Transmission Date: 20210419
  Serious: Yes (Other)
  Sender: FDA-Public Use
  Company Number: CA-ACCORD-212886

PATIENT
  Age: 40 Year
  Sex: Female

DRUGS (12)
  1. VENTOLIN [Concomitant]
     Active Substance: ALBUTEROL SULFATE
     Dosage: AS REQUIRED
  2. CALCIUM CARBONATE/CALCIUM LACTOGLUCONATE [Concomitant]
     Active Substance: CALCIUM CARBONATE\CALCIUM LACTATE GLUCONATE
  3. METHOTREXATE. [Suspect]
     Active Substance: METHOTREXATE
     Indication: PRODUCT USED FOR UNKNOWN INDICATION
     Dosage: 1 EVERY 1 WEEKS
     Route: 058
  4. XELJANZ [Concomitant]
     Active Substance: TOFACITINIB CITRATE
     Indication: RHEUMATOID ARTHRITIS
     Dosage: 2 EVERY 1 DAYS
     Route: 048
  5. ADVAIR HFA [Concomitant]
     Active Substance: FLUTICASONE PROPIONATE\SALMETEROL XINAFOATE
  6. PANTOPRAZOLE [Concomitant]
     Active Substance: PANTOPRAZOLE
     Dosage: EVERY 1 DAYS
  7. FISH OIL [Concomitant]
     Active Substance: FISH OIL
  8. CELEBREX [Concomitant]
     Active Substance: CELECOXIB
     Dosage: EVERY 1 DAYS
  9. ERGOCALCIFEROL. [Concomitant]
     Active Substance: ERGOCALCIFEROL
     Dosage: EVERY 1 DAYS
  10. CYANOCOBALAMIN/CYANOCOBALAMIN ZINC TANNATE/CYANOCOBALAMIN?TANNIN COMPLEX [Concomitant]
     Active Substance: CYANOCOBALAMIN
     Dosage: EVERY 1 DAYS
  11. VITAMINS NOS [Concomitant]
     Active Substance: VITAMINS
     Dosage: EVERY 1 DAYS
  12. FOLIC ACID. [Concomitant]
     Active Substance: FOLIC ACID

REACTIONS (13)
  - Inflammatory bowel disease [Recovered/Resolved]
  - Vomiting [Recovered/Resolved]
  - Haematochezia [Recovered/Resolved]
  - Product dose omission issue [Unknown]
  - Nausea [Recovered/Resolved]
  - Decreased appetite [Recovered/Resolved]
  - Painful respiration [Recovered/Resolved]
  - Abdominal pain [Recovered/Resolved]
  - Product use issue [Unknown]
  - Weight decreased [Recovered/Resolved]
  - Petechiae [Recovered/Resolved]
  - Abdominal distension [Recovered/Resolved]
  - Night sweats [Recovered/Resolved]
